FAERS Safety Report 9152407 (Version 1)
Quarter: 2013Q1

REPORT INFORMATION
  Report Type: Spontaneous
  Country: BR (occurrence: BR)
  Receive Date: 20130308
  Receipt Date: 20130308
  Transmission Date: 20140127
  Serious: Yes (Life-Threatening, Hospitalization)
  Sender: FDA-Public Use
  Company Number: BR-B.I. PHARMACEUTICALS,INC./RIDGEFIELD-2013-BR-00145BR

PATIENT
  Age: 24 Year
  Sex: Male

DRUGS (2)
  1. PRADAXA [Suspect]
     Indication: ATRIAL FIBRILLATION
     Dosage: 300 MG
     Route: 048
     Dates: start: 201202, end: 20130217
  2. HEART MEDICATION [Concomitant]
     Indication: CARDIAC DISORDER

REACTIONS (2)
  - Urethral haemorrhage [Recovered/Resolved]
  - Cardiac failure [Recovered/Resolved]
